FAERS Safety Report 5921856-7 (Version None)
Quarter: 2008Q4

REPORT INFORMATION
  Report Type: 
  Country: None (occurrence: None)
  Receive Date: 20081016
  Receipt Date: 20081016
  Transmission Date: 20090506
  Serious: Yes (Other)
  Sender: FDA-Public Use
  Company Number: None

PATIENT
  Age: 44 Year
  Sex: Male
  Weight: 87.9978 kg

DRUGS (1)
  1. BELLADONNA ALKALOIDS W/ PHENOBARBITAL [Suspect]
     Indication: IRRITABLE BOWEL SYNDROME
     Dosage: 2 TSP TID PRN G-I CRAMPS PO
     Route: 048
     Dates: start: 20081014, end: 20081014

REACTIONS (7)
  - DEPRESSED LEVEL OF CONSCIOUSNESS [None]
  - FALL [None]
  - GAIT DISTURBANCE [None]
  - HYPOAESTHESIA ORAL [None]
  - ORAL DISCOMFORT [None]
  - PRODUCT QUALITY ISSUE [None]
  - TREMOR [None]
